FAERS Safety Report 21161562 (Version 27)
Quarter: 2024Q3

REPORT INFORMATION
  Report Type: Spontaneous
  Country: IN (occurrence: IN)
  Receive Date: 20220802
  Receipt Date: 20240904
  Transmission Date: 20241017
  Serious: Yes (Other)
  Sender: PFIZER
  Company Number: IN-PFIZER INC-202101747857

PATIENT
  Age: 46 Year
  Sex: Female
  Weight: 88 kg

DRUGS (17)
  1. PALBOCICLIB [Suspect]
     Active Substance: PALBOCICLIB
     Indication: Breast cancer stage IV
     Dosage: 125 MG, 1X/DAY
     Route: 048
     Dates: start: 20211007
  2. PALBOCICLIB [Suspect]
     Active Substance: PALBOCICLIB
     Dosage: 1X/DAY 3 WEEKS/ 1 WEEK OFF
     Route: 048
     Dates: start: 20220201
  3. PALBOCICLIB [Suspect]
     Active Substance: PALBOCICLIB
     Dosage: 1X/DAY 3 WEEKS/ 1 WEEK OFF
     Route: 048
     Dates: start: 20220301
  4. PALBOCICLIB [Suspect]
     Active Substance: PALBOCICLIB
     Dosage: ONCE DAILY 3 WEEKS ON/1 WEEK OFF
     Route: 048
  5. PALBOCICLIB [Suspect]
     Active Substance: PALBOCICLIB
     Dosage: 75 MG
     Dates: start: 202302
  6. PALBOCICLIB [Suspect]
     Active Substance: PALBOCICLIB
     Dosage: DAILY FOR 21/28 DAY
     Route: 048
  7. PALBOCICLIB [Suspect]
     Active Substance: PALBOCICLIB
     Dosage: 100 MG, 1X/DAY
     Route: 048
  8. LETROZOLE [Concomitant]
     Active Substance: LETROZOLE
     Dosage: UNK
     Dates: start: 202109
  9. LETROZOLE [Concomitant]
     Active Substance: LETROZOLE
     Dosage: 2.5 MG, 1X/DAY
     Dates: start: 202110
  10. CALCIUM\CHOLECALCIFEROL [Concomitant]
     Active Substance: CALCIUM\CHOLECALCIFEROL
     Dosage: UNK
     Dates: start: 202109
  11. CALCIUM\CHOLECALCIFEROL [Concomitant]
     Active Substance: CALCIUM\CHOLECALCIFEROL
     Dosage: 500 MG, 1X/DAY
     Dates: start: 202110
  12. CALCIUM CARBONATE\CHOLECALCIFEROL [Concomitant]
     Active Substance: CALCIUM CARBONATE\CHOLECALCIFEROL
     Dosage: 500 MG, 1X/DAY
  13. UDAPA [Concomitant]
     Indication: Blood glucose abnormal
     Dosage: 10 MG
  14. ZINCOVIT [ASCORBIC ACID;BIOTIN;CHROMIUM;COLECALCIFEROL;COPPER;FOLIC AC [Concomitant]
     Dosage: UNK, DAILY
  15. MECMAXOL [Concomitant]
     Dosage: UNK, 1X/DAY
  16. DEXORANGE [Concomitant]
     Dosage: 10 ML
  17. MET XL [Concomitant]
     Dosage: 50 MG, 7 AM-X

REACTIONS (23)
  - Neutropenia [Unknown]
  - Body mass index increased [Unknown]
  - Hypertension [Unknown]
  - Platelet count decreased [Unknown]
  - Neutrophil count decreased [Unknown]
  - Blood glucose increased [Not Recovered/Not Resolved]
  - Alopecia [Not Recovered/Not Resolved]
  - White blood cell count decreased [Unknown]
  - Arthralgia [Unknown]
  - Haemoglobin decreased [Unknown]
  - Haematocrit decreased [Unknown]
  - Mean cell haemoglobin decreased [Unknown]
  - Red cell distribution width increased [Unknown]
  - Lymphocyte count increased [Unknown]
  - Eosinophil count decreased [Unknown]
  - Blood bilirubin decreased [Unknown]
  - Cervicitis [Unknown]
  - Heart rate increased [Unknown]
  - Blood creatinine increased [Unknown]
  - Weight decreased [Unknown]
  - Neoplasm progression [Unknown]
  - Neck pain [Unknown]
  - Pain in extremity [Unknown]

NARRATIVE: CASE EVENT DATE: 20211103
